FAERS Safety Report 5025368-7 (Version None)
Quarter: 2006Q2

REPORT INFORMATION
  Report Type: 
  Country: None (occurrence: None)
  Receive Date: 20060426
  Receipt Date: 20060110
  Transmission Date: 20061013
  Serious: Yes (Other)
  Sender: FDA-Public Use
  Company Number: 2006006336

PATIENT
  Age: 60 Year
  Sex: Female
  Weight: 105.6881 kg

DRUGS (4)
  1. LYRICA [Suspect]
     Indication: POLYNEUROPATHY
     Dosage: 150 MG (75 MG, 2 IN 1 D), ORAL
     Route: 048
     Dates: start: 20050701
  2. EFFEXOR [Concomitant]
  3. AMBIEN [Concomitant]
  4. RESTORIL [Concomitant]

REACTIONS (3)
  - COORDINATION ABNORMAL [None]
  - FALL [None]
  - PERIORBITAL HAEMATOMA [None]
